FAERS Safety Report 5918340-3 (Version None)
Quarter: 2008Q4

REPORT INFORMATION
  Report Type: 
  Country: None (occurrence: None)
  Receive Date: 20081010
  Receipt Date: 20080926
  Transmission Date: 20090506
  Serious: Yes (Other)
  Sender: FDA-Public Use
  Company Number: DSU-2008-01559

PATIENT
  Sex: Male

DRUGS (1)
  1. BENICAR [Suspect]
     Indication: HYPERTENSION
     Dosage: 20 MG(20 MG, QD), PER ORAL
     Route: 048
     Dates: end: 20080101

REACTIONS (3)
  - ECONOMIC PROBLEM [None]
  - SINUS TACHYCARDIA [None]
  - TREATMENT NONCOMPLIANCE [None]
